FAERS Safety Report 23248346 (Version 2)
Quarter: 2023Q4

REPORT INFORMATION
  Report Type: Spontaneous
  Country: EG (occurrence: EG)
  Receive Date: 20231201
  Receipt Date: 20231208
  Transmission Date: 20240109
  Serious: Yes (Other)
  Sender: FDA-Public Use
  Company Number: EG-009507513-2311EGY002389

PATIENT
  Sex: Male
  Weight: 33 kg

DRUGS (2)
  1. KEYTRUDA [Suspect]
     Active Substance: PEMBROLIZUMAB
     Indication: Medulloblastoma recurrent
     Dosage: 62.8 MILLIGRAM, Q3W
     Route: 042
     Dates: start: 202309, end: 20231031
  2. CORTISONE [Concomitant]
     Active Substance: CORTISONE
     Dosage: UNK UNK, PRN

REACTIONS (8)
  - Brain injury [Not Recovered/Not Resolved]
  - Balance disorder [Not Recovered/Not Resolved]
  - Asthenopia [Unknown]
  - Product use in unapproved indication [Unknown]
  - Nasopharyngitis [Recovering/Resolving]
  - Seasonal allergy [Recovering/Resolving]
  - Vision blurred [Not Recovered/Not Resolved]
  - Dyspnoea [Recovered/Resolved]
